FAERS Safety Report 4286077-5 (Version None)
Quarter: 2004Q1

REPORT INFORMATION
  Report Type: 
  Country: None (occurrence: None)
  Receive Date: 20040120
  Receipt Date: 20030109
  Transmission Date: 20041129
  Serious: Yes (Other)
  Sender: FDA-Public Use
  Company Number: 2002USA00234

PATIENT
  Age: 76 Year
  Sex: Male
  Weight: 115.2136 kg

DRUGS (5)
  1. PLAVIX [Suspect]
     Indication: STENT PLACEMENT
     Dosage: 75 MG OD - ORAL
     Route: 048
     Dates: start: 20020107, end: 20020117
  2. FLUVASTATIN SODIUM [Concomitant]
  3. METFORMIN HYDROCHLORIDE [Concomitant]
  4. GLYBURIDE [Concomitant]
  5. AVANDIA [Concomitant]

REACTIONS (4)
  - PLATELET COUNT ABNORMAL [None]
  - PURPURA [None]
  - RASH PRURITIC [None]
  - THROMBOTIC THROMBOCYTOPENIC PURPURA [None]
